FAERS Safety Report 9474646 (Version 1)
Quarter: 2013Q3

REPORT INFORMATION
  Report Type: Spontaneous
  Country: US (occurrence: US)
  Receive Date: 20130823
  Receipt Date: 20130823
  Transmission Date: 20140515
  Serious: Yes (Other)
  Sender: FDA-Public Use
  Company Number: CHPA2013US013034

PATIENT
  Age: 53 Year
  Sex: Male

DRUGS (7)
  1. THERAFLU HOT LIQUID MEDICINE UNKNOWN [Suspect]
     Indication: NASOPHARYNGITIS
     Dosage: UNK, UNK
     Route: 048
  2. THERAFLU HOT LIQUID MEDICINE UNKNOWN [Suspect]
     Indication: INFLUENZA
  3. THERAFLU NIGHTTIME SEVERE COLD [Suspect]
     Indication: NASOPHARYNGITIS
     Dosage: 2 DF, PRN
     Route: 048
  4. THERAFLU NIGHTTIME SEVERE COLD [Suspect]
     Indication: INFLUENZA
  5. METOPROLOL [Concomitant]
     Indication: BLOOD PRESSURE
     Dosage: 5 MG, QD
     Route: 048
  6. FISH OIL [Concomitant]
     Dosage: 1000 MG, QD
     Route: 048
  7. HYDROCODONE [Concomitant]
     Indication: PAIN
     Dosage: 0.5 UNK, UNK
     Route: 048

REACTIONS (6)
  - Myocardial infarction [Recovered/Resolved]
  - Nasopharyngitis [Recovering/Resolving]
  - Tremor [Recovered/Resolved]
  - Chills [Recovered/Resolved]
  - Feeling abnormal [Recovering/Resolving]
  - Expired drug administered [Unknown]
